FAERS Safety Report 17425243 (Version 1)
Quarter: 2020Q1

REPORT INFORMATION
  Report Type: Spontaneous
  Country: US (occurrence: US)
  Receive Date: 20200217
  Receipt Date: 20200217
  Transmission Date: 20200409
  Serious: No
  Sender: FDA-Public Use
  Company Number: US-GLAXOSMITHKLINE-US2020024122

PATIENT
  Sex: Female

DRUGS (2)
  1. TEA TREE OIL. [Concomitant]
     Active Substance: TEA TREE OIL
     Indication: ORAL HERPES
     Dosage: UNK
  2. ABREVA [Suspect]
     Active Substance: DOCOSANOL
     Indication: ORAL HERPES
     Dosage: UNK
     Dates: start: 20200207

REACTIONS (3)
  - Application site vesicles [Recovered/Resolved]
  - Condition aggravated [Recovered/Resolved]
  - Oral herpes [Recovered/Resolved]

NARRATIVE: CASE EVENT DATE: 20200207
